FAERS Safety Report 7364418-X (Version None)
Quarter: 2011Q1

REPORT INFORMATION
  Report Type: 
  Country: None (occurrence: None)
  Receive Date: 20110321
  Receipt Date: 20110127
  Transmission Date: 20110831
  Serious: Yes (Other)
  Sender: FDA-Public Use
  Company Number: US-BAYER-200940944NA

PATIENT
  Sex: Female

DRUGS (4)
  1. PROTAMINE SULFATE [Concomitant]
  2. TRASYLOL [Suspect]
     Indication: TRANSMYOCARDIAL REVASCULARISATION
  3. HEPARIN SODIUM [Concomitant]
  4. TRASYLOL [Suspect]
     Indication: CORONARY ARTERY BYPASS
     Dosage: 250 ML, THEN 50 ML/HR INFUSION
     Dates: start: 20051010, end: 20051010

REACTIONS (11)
  - UNEVALUABLE EVENT [None]
  - DEPRESSION [None]
  - PAIN [None]
  - ANHEDONIA [None]
  - FEAR [None]
  - DISABILITY [None]
  - MULTI-ORGAN FAILURE [None]
  - RENAL INJURY [None]
  - RENAL FAILURE [None]
  - INJURY [None]
  - ANXIETY [None]
